FAERS Safety Report 5267644-9 (Version None)
Quarter: 2007Q1

REPORT INFORMATION
  Report Type: 
  Country: None (occurrence: None)
  Receive Date: 20070316
  Receipt Date: 20070302
  Transmission Date: 20070707
  Serious: Yes (Hospitalization)
  Sender: FDA-Public Use
  Company Number: NO-MERCK-0612USA01053

PATIENT
  Age: 69 Year
  Sex: Male

DRUGS (3)
  1. COZAAR [Suspect]
     Indication: HYPERTENSION
     Route: 048
  2. HYDRODIURIL [Suspect]
     Indication: HYPERTENSION
     Route: 048
  3. METFORMIN [Suspect]
     Indication: DIABETES MELLITUS NON-INSULIN-DEPENDENT
     Route: 065

REACTIONS (8)
  - ABDOMINAL PAIN [None]
  - CIRCULATORY COLLAPSE [None]
  - DIARRHOEA [None]
  - HYPERVENTILATION [None]
  - NEPHROLITHIASIS [None]
  - RENAL FAILURE ACUTE [None]
  - RESPIRATORY ARREST [None]
  - VISUAL DISTURBANCE [None]
